FAERS Safety Report 7715856-4 (Version None)
Quarter: 2011Q3

REPORT INFORMATION
  Report Type: 
  Country: None (occurrence: None)
  Receive Date: 20110829
  Receipt Date: 20110829
  Transmission Date: 20111222
  Serious: No
  Sender: FDA-Public Use
  Company Number: None

PATIENT
  Age: 64 Year
  Sex: Male
  Weight: 88.45 kg

DRUGS (8)
  1. NORTRIPTYLINE HYDROCHLORIDE [Concomitant]
  2. CTOS [Concomitant]
  3. ADVAIR DISKUS 100/50 [Concomitant]
  4. ENBREL [Suspect]
     Indication: ANKYLOSING SPONDYLITIS
     Dosage: 50MG/MI SURECLICK
     Dates: start: 20091108, end: 20110616
  5. VYTORIN [Concomitant]
  6. ALBUTEROL SULFATE AUTOHALER [Concomitant]
  7. NEURONTIN [Concomitant]
  8. VENTOLIN HFA [Concomitant]

REACTIONS (2)
  - MIDDLE INSOMNIA [None]
  - BLINDNESS UNILATERAL [None]
